FAERS Safety Report 7867315-6 (Version None)
Quarter: 2011Q4

REPORT INFORMATION
  Report Type: 
  Country: None (occurrence: None)
  Receive Date: 20111028
  Receipt Date: 20111020
  Transmission Date: 20120403
  Serious: Yes (Hospitalization, Other)
  Sender: FDA-Public Use
  Company Number: US-NOVOPROD-337822

PATIENT

DRUGS (11)
  1. NOVOLOG [Suspect]
     Indication: TYPE 2 DIABETES MELLITUS
     Dosage: SLIDING SCALE
     Route: 058
     Dates: start: 20090101
  2. TIZANIDINE HCL [Concomitant]
     Indication: INTERVERTEBRAL DISC DEGENERATION
  3. SOMA [Concomitant]
     Indication: INTERVERTEBRAL DISC DEGENERATION
  4. LYRICA [Concomitant]
     Indication: NEUROPATHY PERIPHERAL
  5. VITAMIN D [Concomitant]
     Indication: PRODUCT USED FOR UNKNOWN INDICATION
  6. METHADONE HCL [Concomitant]
     Indication: PRODUCT USED FOR UNKNOWN INDICATION
  7. LANTUS [Suspect]
     Indication: TYPE 2 DIABETES MELLITUS
     Dosage: SLIDING SCALE
     Dates: end: 20110928
  8. NUCYNTA [Concomitant]
     Indication: INTERVERTEBRAL DISC DEGENERATION
  9. ACTOS [Concomitant]
     Indication: TYPE 2 DIABETES MELLITUS
  10. MILNACIPRAN [Concomitant]
     Indication: INTERVERTEBRAL DISC DEGENERATION
  11. PREVACID [Concomitant]
     Indication: GASTROOESOPHAGEAL REFLUX DISEASE
     Dosage: UNK, BID

REACTIONS (3)
  - PAIN [None]
  - BLOOD GLUCOSE INCREASED [None]
  - LOSS OF CONSCIOUSNESS [None]
